FAERS Safety Report 4808742-0 (Version None)
Quarter: 2005Q4

REPORT INFORMATION
  Report Type: 
  Country: None (occurrence: None)
  Receive Date: 20051021
  Receipt Date: 20051021
  Transmission Date: 20060501
  Serious: Yes (Hospitalization)
  Sender: FDA-Public Use
  Company Number: None

PATIENT
  Sex: Male
  Weight: 99.7913 kg

DRUGS (3)
  1. GEMZAR [Suspect]
     Indication: PANCREATIC CARCINOMA
     Dosage: 1000MG/M2 IV Q 2WK
     Route: 042
     Dates: start: 20051006
  2. OXALIPLATIN [Suspect]
     Indication: PANCREATIC CARCINOMA
     Dosage: 100MG/M2 IV Q 2WK
     Route: 042
     Dates: start: 20051006
  3. LAPATINIB [Suspect]
     Dosage: 1500MG PO QD
     Route: 048
     Dates: start: 20051006, end: 20051013

REACTIONS (6)
  - ANOREXIA [None]
  - DEHYDRATION [None]
  - DIARRHOEA [None]
  - DIARRHOEA INFECTIOUS [None]
  - ORAL INTAKE REDUCED [None]
  - VOMITING [None]
